FAERS Safety Report 9120415 (Version 3)
Quarter: 2013Q1

REPORT INFORMATION
  Report Type: Spontaneous
  Country: US (occurrence: US)
  Receive Date: 20130226
  Receipt Date: 20130312
  Transmission Date: 20140127
  Serious: Yes (Hospitalization, Other)
  Sender: FDA-Public Use
  Company Number: US-TEVA-387737USA

PATIENT
  Age: 48 Year
  Sex: Male

DRUGS (3)
  1. CLARAVIS [Suspect]
     Dosage: 60MG AM
     Dates: start: 20120824
  2. AMNESTEEM [Suspect]
     Dosage: PM
  3. GEMFIBROZIL [Concomitant]
     Dosage: 1200 MILLIGRAM DAILY;

REACTIONS (8)
  - Ulcerative keratitis [Recovering/Resolving]
  - Vision blurred [Recovering/Resolving]
  - Blindness [Recovering/Resolving]
  - Headache [Recovered/Resolved]
  - Lacrimation decreased [Unknown]
  - Eye pain [Unknown]
  - Dry eye [Unknown]
  - Blood triglycerides increased [Unknown]
